FAERS Safety Report 9302621 (Version 1)
Quarter: 2013Q2

REPORT INFORMATION
  Report Type: Spontaneous
  Country: KW (occurrence: None)
  Receive Date: 20130517
  Receipt Date: 20130603
  Transmission Date: 20140414
  Serious: Yes (Death, Hospitalization)
  Sender: FDA-Public Use
  Company Number: SYM-2013-03884

PATIENT
  Age: 22 Year
  Sex: Female

DRUGS (1)
  1. AMMONAPS [Suspect]
     Indication: PRODUCT USED FOR UNKNOWN INDICATION

REACTIONS (6)
  - Treatment noncompliance [None]
  - Shock [None]
  - Altered state of consciousness [None]
  - Ammonia increased [None]
  - Haemodialysis [None]
  - Metabolic disorder [None]
